FAERS Safety Report 10277074 (Version 1)
Quarter: 2014Q3

REPORT INFORMATION
  Report Type: Spontaneous
  Country: CH (occurrence: None)
  Receive Date: 20140701
  Receipt Date: 20140701
  Transmission Date: 20150326
  Serious: Yes (Other)
  Sender: FDA-Public Use
  Company Number: 20140359

PATIENT
  Age: 32 Year
  Sex: Female

DRUGS (3)
  1. AGIOCUR (PLANTAGO OVATA) [Concomitant]
  2. FERINJECT [Suspect]
     Active Substance: FERRIC CARBOXYMALTOSE
     Indication: IRON DEFICIENCY ANAEMIA
     Dates: start: 20140430, end: 20140430
  3. SERETIDE (FLUTICASONE PROPIONATE) [Concomitant]

REACTIONS (5)
  - Anxiety [None]
  - Dizziness [None]
  - Pyrexia [None]
  - Headache [None]
  - Arthralgia [None]

NARRATIVE: CASE EVENT DATE: 20140501
